FAERS Safety Report 10256286 (Version 1)
Quarter: 2014Q2

REPORT INFORMATION
  Report Type: Spontaneous
  Country: US (occurrence: US)
  Receive Date: 20140624
  Receipt Date: 20140624
  Transmission Date: 20141212
  Serious: Yes (Hospitalization, Other)
  Sender: FDA-Public Use
  Company Number: US-WATSON-2014-14011

PATIENT
  Age: 52 Year
  Sex: Male

DRUGS (5)
  1. MINOXIDIL (WATSON LABORATORIES) [Suspect]
     Indication: HYPERTENSION
     Dosage: 10 MG, DAILY
     Route: 048
  2. METOPROLOL [Concomitant]
     Indication: PRODUCT USED FOR UNKNOWN INDICATION
     Dosage: 50 MG, UNKNOWN
     Route: 065
  3. AMLODIPINE [Concomitant]
     Indication: PRODUCT USED FOR UNKNOWN INDICATION
     Dosage: 10 MG, UNKNOWN
     Route: 065
  4. LISINOPRIL [Concomitant]
     Indication: PRODUCT USED FOR UNKNOWN INDICATION
     Dosage: 40 MG, UNKNOWN
     Route: 065
  5. ASPIRIN [Concomitant]
     Indication: PRODUCT USED FOR UNKNOWN INDICATION
     Dosage: 81 MG, UNKNOWN
     Route: 048

REACTIONS (11)
  - Pericardial effusion [Recovering/Resolving]
  - Venous pressure jugular increased [None]
  - Cardiac murmur [None]
  - Right ventricular heave [None]
  - Heart sounds abnormal [None]
  - Oedema [None]
  - Electrocardiogram T wave inversion [None]
  - Pulmonary embolism [None]
  - Inferior vena cava dilatation [None]
  - Right atrial dilatation [None]
  - Dilatation ventricular [None]
